FAERS Safety Report 4674342-9 (Version None)
Quarter: 2005Q2

REPORT INFORMATION
  Report Type: 
  Country: None (occurrence: None)
  Receive Date: 20050524
  Receipt Date: 20050511
  Transmission Date: 20051028
  Serious: Yes (Hospitalization, Other)
  Sender: FDA-Public Use
  Company Number: USA050394307

PATIENT
  Age: 74 Year
  Sex: Female
  Weight: 76 kg

DRUGS (10)
  1. FORTEO [Suspect]
     Indication: OSTEOPOROSIS
     Dosage: 20 UG/1 DAY
     Dates: start: 20050324
  2. FOSAMAX [Concomitant]
  3. CALCIUM GLUCONATE [Concomitant]
  4. VITAMIN D [Concomitant]
  5. PREMARIN [Concomitant]
  6. ALLERGY SHOT [Concomitant]
  7. DEPAKOTE [Concomitant]
  8. MAXALT-MLT (RIZATRIPTAN BENZOATE) [Concomitant]
  9. SINGULAIR (MONTELUKAST) [Concomitant]
  10. ADVAIR [Concomitant]

REACTIONS (11)
  - ASTHMA [None]
  - BONE PAIN [None]
  - CONDITION AGGRAVATED [None]
  - DIZZINESS [None]
  - DYSPNOEA [None]
  - HEADACHE [None]
  - MIGRAINE [None]
  - MYALGIA [None]
  - PHARMACEUTICAL PRODUCT COMPLAINT [None]
  - SENSORY DISTURBANCE [None]
  - TRANSIENT ISCHAEMIC ATTACK [None]
